FAERS Safety Report 15700138 (Version 3)
Quarter: 2019Q2

REPORT INFORMATION
  Report Type: Report from Study
  Country: US (occurrence: US)
  Receive Date: 20181207
  Receipt Date: 20190422
  Transmission Date: 20190711
  Serious: No
  Sender: FDA-Public Use
  Company Number: PHEH2018US050961

PATIENT
  Age: 27 Year
  Sex: Female

DRUGS (1)
  1. GILENYA [Suspect]
     Active Substance: FINGOLIMOD HYDROCHLORIDE
     Indication: MULTIPLE SCLEROSIS
     Dosage: 0.5 MG, QD
     Route: 048
     Dates: start: 20181030

REACTIONS (6)
  - Nasal congestion [Not Recovered/Not Resolved]
  - Back pain [Recovering/Resolving]
  - Breast tenderness [Not Recovered/Not Resolved]
  - Pharyngitis streptococcal [Unknown]
  - Breast pain [Not Recovered/Not Resolved]
  - Breast swelling [Unknown]

NARRATIVE: CASE EVENT DATE: 20181030
